FAERS Safety Report 24644285 (Version 1)
Quarter: 2024Q4

REPORT INFORMATION
  Report Type: Spontaneous
  Country: CN (occurrence: CN)
  Receive Date: 20241120
  Receipt Date: 20241120
  Transmission Date: 20250115
  Serious: Yes (Hospitalization)
  Sender: ABBVIE
  Company Number: CN-ABBVIE-6004577

PATIENT
  Age: 46 Year
  Sex: Female
  Weight: 48 kg

DRUGS (8)
  1. VENCLEXTA [Suspect]
     Active Substance: VENETOCLAX
     Indication: Acute myeloid leukaemia
     Route: 048
     Dates: start: 20241102, end: 20241103
  2. SODIUM CHLORIDE [Suspect]
     Active Substance: SODIUM CHLORIDE
     Indication: Hypergammaglobulinaemia benign monoclonal
     Dosage: TIME INTERVAL: 0.33333333 DAYS: FORM STRENGTH: 0.9%
     Route: 008
     Dates: start: 20241031, end: 20241031
  3. SODIUM CHLORIDE [Suspect]
     Active Substance: SODIUM CHLORIDE
     Indication: Hypergammaglobulinaemia benign monoclonal
     Dosage: TIME INTERVAL: TOTAL: FORM STRENGTH: 0.9%
     Route: 008
     Dates: start: 20241102, end: 20241102
  4. METHOTREXATE [Concomitant]
     Active Substance: METHOTREXATE
     Indication: Neoplasm malignant
     Dosage: TIME INTERVAL: 0.33333333 DAYS
     Route: 008
     Dates: start: 20241031, end: 20241031
  5. METHOTREXATE [Concomitant]
     Active Substance: METHOTREXATE
     Indication: Neoplasm malignant
     Dosage: TIME INTERVAL: TOTAL
     Route: 008
     Dates: start: 20241102, end: 20241102
  6. CYTARABINE [Suspect]
     Active Substance: CYTARABINE
     Indication: Acute myeloid leukaemia
     Dosage: TIME INTERVAL: 0.33333333 DAYS
     Route: 008
     Dates: start: 20241031, end: 20241031
  7. CYTARABINE [Suspect]
     Active Substance: CYTARABINE
     Indication: Acute myeloid leukaemia
     Dosage: IMPORTED 0.050G,4.500G
     Route: 041
     Dates: start: 20241102
  8. DEXTROSE [Concomitant]
     Active Substance: DEXTROSE MONOHYDRATE
     Indication: Neoplasm malignant
     Dosage: TIME INTERVAL: 0.33333333 DAYS
     Route: 041
     Dates: start: 20241101, end: 20241105

REACTIONS (4)
  - Lymphocyte count decreased [Unknown]
  - White blood cell count decreased [Unknown]
  - Neutropenia [Unknown]
  - Platelet count decreased [Unknown]

NARRATIVE: CASE EVENT DATE: 20241111
